FAERS Safety Report 25608230 (Version 1)
Quarter: 2025Q3

REPORT INFORMATION
  Report Type: Spontaneous
  Country: GB (occurrence: GB)
  Receive Date: 20250725
  Receipt Date: 20250725
  Transmission Date: 20251020
  Serious: Yes (Other)
  Sender: EISAI
  Company Number: GB-MHRA-EMIS-863-144c54b1-69aa-49d6-ba0b-a53b6319a011

PATIENT
  Age: 84 Year
  Sex: Male
  Weight: 65 kg

DRUGS (1)
  1. DONEPEZIL [Suspect]
     Active Substance: DONEPEZIL
     Indication: Product used for unknown indication
     Dosage: DOSE UNKNOWN
     Dates: start: 20250211, end: 20250428

REACTIONS (2)
  - Muscle spasms [Unknown]
  - Nightmare [Unknown]

NARRATIVE: CASE EVENT DATE: 20250101
